FAERS Safety Report 8453516 (Version 3)
Quarter: 2013Q1

REPORT INFORMATION
  Report Type: Report from Study
  Country: US (occurrence: US)
  Receive Date: 20120312
  Receipt Date: 20130129
  Transmission Date: 20140127
  Serious: Yes (Hospitalization)
  Sender: FDA-Public Use
  Company Number: US-ACTELION-A-US2012-62121

PATIENT
  Age: 33 Year
  Sex: Female

DRUGS (1)
  1. TRACLEER [Suspect]
     Indication: PULMONARY ARTERIAL HYPERTENSION
     Dosage: UNK
     Route: 048
     Dates: start: 20111006

REACTIONS (6)
  - Infection [Unknown]
  - Systemic lupus erythematosus [Recovered/Resolved]
  - Medical device complication [Recovering/Resolving]
  - Sinusitis [Recovered/Resolved]
  - Nasopharyngitis [Recovered/Resolved]
  - Pulmonary arterial hypertension [Recovering/Resolving]
